FAERS Safety Report 6397297-8 (Version None)
Quarter: 2009Q4

REPORT INFORMATION
  Report Type: 
  Country: None (occurrence: None)
  Receive Date: 20091012
  Receipt Date: 20091007
  Transmission Date: 20100525
  Serious: Yes (Death, Hospitalization)
  Sender: FDA-Public Use
  Company Number: ZA-ASTRAZENECA-2009SE18540

PATIENT
  Age: 46 Year
  Sex: Female

DRUGS (2)
  1. CRESTOR [Suspect]
     Indication: HYPERCHOLESTEROLAEMIA
     Route: 048
     Dates: start: 20080909, end: 20090601
  2. SIMVASTATIN [Concomitant]
     Dates: start: 20040101, end: 20070101

REACTIONS (3)
  - HEPATIC FAILURE [None]
  - JAUNDICE [None]
  - LIVER DISORDER [None]
